FAERS Safety Report 24646262 (Version 1)
Quarter: 2024Q4

REPORT INFORMATION
  Report Type: Spontaneous
  Country: PT (occurrence: PT)
  Receive Date: 20241121
  Receipt Date: 20241121
  Transmission Date: 20250115
  Serious: Yes (Other)
  Sender: MERCK
  Company Number: None

PATIENT
  Age: 62 Year
  Sex: Male

DRUGS (10)
  1. PREVYMIS [Suspect]
     Active Substance: LETERMOVIR
     Indication: Antiviral prophylaxis
     Dosage: 1 TABLET PER DAY REPORTED AS 240 MILLIGRAM, DAILY (QD)
     Route: 048
  2. PANTOPRAZOLE [Concomitant]
     Active Substance: PANTOPRAZOLE
     Route: 048
  3. ACYCLOVIR [Concomitant]
     Active Substance: ACYCLOVIR
  4. ATOVAQUONE [Concomitant]
     Active Substance: ATOVAQUONE
     Route: 048
  5. MAGNESONA [Concomitant]
     Route: 048
  6. AMLODIPINE [Concomitant]
     Active Substance: AMLODIPINE BESYLATE
     Route: 048
  7. ISONIAZID [Concomitant]
     Active Substance: ISONIAZID
  8. PYRIDOXINE [Concomitant]
     Active Substance: PYRIDOXINE
  9. CYCLOSPORINE [Concomitant]
     Active Substance: CYCLOSPORINE
  10. URSODIOL [Concomitant]
     Active Substance: URSODIOL
     Route: 048

REACTIONS (1)
  - Xerophthalmia [Recovering/Resolving]
